FAERS Safety Report 23512621 (Version 1)
Quarter: 2024Q1

REPORT INFORMATION
  Report Type: Spontaneous
  Country: BR (occurrence: BR)
  Receive Date: 20240212
  Receipt Date: 20240212
  Transmission Date: 20240409
  Serious: Yes (Hospitalization)
  Sender: FDA-Public Use
  Company Number: BR-ULTRAGENYX PHARMACEUTICAL INC.-BR-UGX-24-00227

PATIENT

DRUGS (2)
  1. DOJOLVI [Suspect]
     Active Substance: TRIHEPTANOIN
     Indication: Very long-chain acyl-coenzyme A dehydrogenase deficiency
     Dosage: UNK
     Dates: start: 202212
  2. DOJOLVI [Suspect]
     Active Substance: TRIHEPTANOIN
     Dosage: 10 MILLILITER, QID

REACTIONS (2)
  - Terminal ileitis [Recovered/Resolved]
  - Blood creatine phosphokinase increased [Recovered/Resolved]

NARRATIVE: CASE EVENT DATE: 20231129
